FAERS Safety Report 8158231-3 (Version None)
Quarter: 2012Q1

REPORT INFORMATION
  Report Type: 
  Country: None (occurrence: None)
  Receive Date: 20120223
  Receipt Date: 20120210
  Transmission Date: 20120608
  Serious: Yes (Other)
  Sender: FDA-Public Use
  Company Number: US-PAR PHARMACEUTICAL, INC-2012SCPR004209

PATIENT

DRUGS (3)
  1. FENTANYL CITRATE [Suspect]
     Dosage: 1200 MCG, UNKNOWN
     Route: 048
  2. FENTANYL CITRATE [Suspect]
     Indication: BREAKTHROUGH PAIN
     Dosage: VARIABLE BETWEEN 200-400 MCG PER DAY
     Route: 048
     Dates: start: 20010101
  3. METHADONE HCL [Concomitant]
     Indication: PAIN
     Dosage: UNK, UNKNOWN
     Route: 065

REACTIONS (4)
  - THROAT LESION [None]
  - OFF LABEL USE [None]
  - ADVERSE EVENT [None]
  - OESOPHAGEAL DISORDER [None]
